FAERS Safety Report 14782999 (Version 22)
Quarter: 2021Q4

REPORT INFORMATION
  Report Type: Report from Study
  Country: DE (occurrence: DE)
  Receive Date: 20180420
  Receipt Date: 20211201
  Transmission Date: 20220303
  Serious: Yes (Hospitalization, Other)
  Sender: FDA-Public Use
  Company Number: DE-002147023-PHHY2018DE061274

PATIENT

DRUGS (11)
  1. RUXOLITINIB [Suspect]
     Active Substance: RUXOLITINIB
     Indication: Myelofibrosis
     Dosage: 10 MG, QD
     Route: 048
     Dates: start: 20180105, end: 20180207
  2. RUXOLITINIB [Suspect]
     Active Substance: RUXOLITINIB
     Dosage: 10 MG, QD
     Route: 048
     Dates: start: 20180508, end: 20181106
  3. RUXOLITINIB [Suspect]
     Active Substance: RUXOLITINIB
     Dosage: 10 MG, QD
     Route: 048
     Dates: start: 20181115
  4. RUXOLITINIB [Suspect]
     Active Substance: RUXOLITINIB
     Dosage: 15 MG, QD
     Route: 048
     Dates: start: 20201026, end: 20210126
  5. RUXOLITINIB [Suspect]
     Active Substance: RUXOLITINIB
     Dosage: 20 MG, QD
     Route: 048
     Dates: start: 20210127
  6. LEVOTHYROXINE [Concomitant]
     Active Substance: LEVOTHYROXINE
     Indication: Hypothyroidism
     Dosage: 50 UG, QD
     Route: 065
  7. PREDNISOLONE [Concomitant]
     Active Substance: PREDNISOLONE
     Indication: Thrombocytopenia
     Dosage: 5 MG, QD
     Route: 065
     Dates: start: 20180105, end: 20180107
  8. PANTOPRAZOLE [Concomitant]
     Active Substance: PANTOPRAZOLE
     Indication: Product used for unknown indication
     Dosage: 40 OT, QD
     Route: 065
     Dates: start: 20170915
  9. PANTOPRAZOLE [Concomitant]
     Active Substance: PANTOPRAZOLE
     Dosage: 40 OT, UNK
     Route: 065
     Dates: start: 20180305
  10. ALENDRONATE [Concomitant]
     Active Substance: ALENDRONATE SODIUM
     Indication: Osteopenia
     Dosage: 70 MG, QW
     Route: 065
     Dates: start: 20190201
  11. NOVALGIN (METAMIZOLE SODIUM) [Concomitant]
     Active Substance: METAMIZOLE SODIUM
     Indication: Pain
     Dosage: UNK (AS NEEDED)
     Route: 065
     Dates: start: 20191119

REACTIONS (26)
  - Diarrhoea [Recovered/Resolved]
  - Thrombocytopenia [Recovering/Resolving]
  - Anaemia [Recovering/Resolving]
  - Influenza [Recovering/Resolving]
  - Urinary tract infection pseudomonal [Recovered/Resolved]
  - Bronchitis [Recovered/Resolved]
  - Vomiting [Recovered/Resolved]
  - Pain in extremity [Recovered/Resolved]
  - Headache [Recovered/Resolved]
  - Bronchial wall thickening [Recovered/Resolved]
  - Erysipelas [Recovered/Resolved]
  - Erysipelas [Recovered/Resolved]
  - Hypokalaemia [Recovered/Resolved]
  - Aortic arteriosclerosis [Unknown]
  - International normalised ratio increased [Unknown]
  - General physical health deterioration [Unknown]
  - Pyrexia [Unknown]
  - Splenomegaly [Unknown]
  - Abdominal pain lower [Unknown]
  - Abdominal pain upper [Unknown]
  - Abdominal discomfort [Unknown]
  - Degenerative bone disease [Unknown]
  - Spinal osteoarthritis [Unknown]
  - Weight increased [Unknown]
  - Osteopenia [Not Recovered/Not Resolved]
  - Concomitant disease aggravated [Not Recovered/Not Resolved]

NARRATIVE: CASE EVENT DATE: 20180207
